FAERS Safety Report 11595704 (Version 1)
Quarter: 2015Q4

REPORT INFORMATION
  Report Type: Spontaneous
  Country: DE (occurrence: DE)
  Receive Date: 20151006
  Receipt Date: 20151006
  Transmission Date: 20160304
  Serious: Yes (Hospitalization)
  Sender: FDA-Public Use
  Company Number: DE-DRREDDYS-GER/GER/15/0049377

PATIENT
  Sex: Male
  Weight: 86 kg

DRUGS (9)
  1. SIMVABETA 20 MG FILMTABLETTEN [Suspect]
     Active Substance: SIMVASTATIN
     Indication: PRODUCT USED FOR UNKNOWN INDICATION
     Route: 048
  2. SIMVA HEXAL [Suspect]
     Active Substance: SIMVASTATIN
     Indication: PRODUCT USED FOR UNKNOWN INDICATION
  3. APROVEL 150 [Concomitant]
     Indication: CORONARY ARTERY DISEASE
     Dates: start: 2004
  4. SIMVA-HENNING 20 [Suspect]
     Active Substance: SIMVASTATIN
     Indication: CORONARY ARTERY DISEASE
     Dates: start: 2004
  5. ASS-RATIOPHARM [Concomitant]
     Indication: CORONARY ARTERY DISEASE
     Dates: start: 2004
  6. BELOC ZOK 95 [Concomitant]
     Active Substance: METOPROLOL SUCCINATE
     Indication: CORONARY ARTERY DISEASE
     Dates: start: 2004
  7. IRBESARTAN. [Concomitant]
     Active Substance: IRBESARTAN
     Indication: CORONARY ARTERY DISEASE
  8. ASS 100 TAH [Concomitant]
     Indication: CORONARY ARTERY DISEASE
  9. METOPROLOL [Concomitant]
     Active Substance: METOPROLOL
     Indication: CORONARY ARTERY DISEASE

REACTIONS (6)
  - Polyneuropathy [Not Recovered/Not Resolved]
  - Paraesthesia [Not Recovered/Not Resolved]
  - Gait disturbance [Not Recovered/Not Resolved]
  - Peripheral sensory neuropathy [None]
  - Muscle disorder [None]
  - Peroneal nerve palsy [None]
